FAERS Safety Report 6696714-3 (Version None)
Quarter: 2010Q2

REPORT INFORMATION
  Report Type: 
  Country: None (occurrence: None)
  Receive Date: 20100421
  Receipt Date: 20091230
  Transmission Date: 20101027
  Serious: No
  Sender: FDA-Public Use
  Company Number: US-000050

PATIENT
  Sex: Female
  Weight: 70.7611 kg

DRUGS (5)
  1. KUVAN [Suspect]
     Indication: PHENYLKETONURIA
     Dosage: (ORAL)
     Route: 048
     Dates: start: 20091124
  2. PERCOCET [Concomitant]
  3. SOMA [Concomitant]
  4. VALIUM [Concomitant]
  5. FIORICET [Concomitant]

REACTIONS (3)
  - MIGRAINE [None]
  - OROPHARYNGEAL PAIN [None]
  - VOMITING [None]
